FAERS Safety Report 21517010 (Version 5)
Quarter: 2022Q4

REPORT INFORMATION
  Report Type: Report from Study
  Country: AU (occurrence: AU)
  Receive Date: 20221028
  Receipt Date: 20221226
  Transmission Date: 20230113
  Serious: Yes (Hospitalization, Disabling)
  Sender: FDA-Public Use
  Company Number: AU-BAYER-2022A128064

PATIENT
  Age: 82 Year
  Sex: Male
  Weight: 94.3 kg

DRUGS (3)
  1. RIVAROXABAN [Suspect]
     Active Substance: RIVAROXABAN
     Indication: Cerebrovascular accident
     Dosage: 20 MG, QD
     Route: 048
     Dates: start: 20220915
  2. FINERENONE [Suspect]
     Active Substance: FINERENONE
     Indication: Cardiac failure
     Dosage: 20 MG, QD
     Route: 048
     Dates: start: 20220624, end: 20220721
  3. FINERENONE [Suspect]
     Active Substance: FINERENONE
     Indication: Cardiac failure
     Dosage: 40 MG, QD
     Route: 048
     Dates: start: 20220722

REACTIONS (3)
  - Gastric ulcer [Recovered/Resolved]
  - Anaemia [Not Recovered/Not Resolved]
  - Anaemia [Recovered/Resolved with Sequelae]

NARRATIVE: CASE EVENT DATE: 20220909
